FAERS Safety Report 22623985 (Version 2)
Quarter: 2023Q2

REPORT INFORMATION
  Report Type: Spontaneous
  Country: JP (occurrence: JP)
  Receive Date: 20230621
  Receipt Date: 20230627
  Transmission Date: 20230721
  Serious: No
  Sender: FDA-Public Use
  Company Number: JP-MSD-M2023-23565

PATIENT
  Age: 46 Year
  Sex: Male

DRUGS (3)
  1. LAGEVRIO [Suspect]
     Active Substance: MOLNUPIRAVIR
     Indication: COVID-19 treatment
     Dosage: 1000 MILLIGRAM, ONCE
     Route: 048
     Dates: start: 20230611, end: 20230611
  2. LAGEVRIO [Suspect]
     Active Substance: MOLNUPIRAVIR
     Dosage: 1000 MILLIGRAM, BID
     Route: 048
     Dates: start: 20230612, end: 20230613
  3. LAGEVRIO [Suspect]
     Active Substance: MOLNUPIRAVIR
     Dosage: 1000 MILLIGRAM, ONCE
     Route: 048
     Dates: start: 20230614, end: 20230614

REACTIONS (3)
  - Hypoaesthesia [Unknown]
  - Overdose [Unknown]
  - Product use issue [Unknown]

NARRATIVE: CASE EVENT DATE: 20230611
